FAERS Safety Report 7199719-1 (Version None)
Quarter: 2010Q4

REPORT INFORMATION
  Report Type: 
  Country: None (occurrence: None)
  Receive Date: 20101228
  Receipt Date: 20101220
  Transmission Date: 20110411
  Serious: Yes (Hospitalization, Other)
  Sender: FDA-Public Use
  Company Number: AU-ROCHE-617449

PATIENT
  Sex: Female
  Weight: 78 kg

DRUGS (22)
  1. TOCILIZUMAB [Suspect]
     Indication: RHEUMATOID ARTHRITIS
     Dosage: FORM-(IN 100 ML N/SALINE), INFUSION, DOSE 8MG/KG STRENGTH REPORTED AS 400MG AND 80MG.
     Route: 042
     Dates: start: 20081023
  2. TOCILIZUMAB [Suspect]
     Dosage: DOSE INCREASED
     Route: 042
     Dates: start: 20081120
  3. TOCILIZUMAB [Suspect]
     Dosage: DOSE INCREASED
     Route: 042
     Dates: start: 20081218
  4. TOCILIZUMAB [Suspect]
     Dosage: DOSE DECREASED
     Route: 042
     Dates: start: 20090115
  5. TOCILIZUMAB [Suspect]
     Dosage: DOSE INCREASED
     Route: 042
     Dates: start: 20090212
  6. TOCILIZUMAB [Suspect]
     Route: 042
     Dates: end: 20100917
  7. LEFLUNOMIDE [Concomitant]
     Route: 048
     Dates: start: 20071211, end: 20080502
  8. LEFLUNOMIDE [Concomitant]
     Route: 048
     Dates: start: 20080503
  9. SALAZOPYRIN [Concomitant]
     Route: 048
     Dates: start: 20080503
  10. SALAZOPYRIN [Concomitant]
     Route: 048
  11. HYDROXYCHLOROQUINE SULFATE [Concomitant]
     Route: 048
     Dates: start: 20080121
  12. COVERSYL PLUS [Concomitant]
     Route: 048
     Dates: start: 20080503
  13. NEXIUM [Concomitant]
     Route: 048
     Dates: start: 20050101
  14. LIPITOR [Concomitant]
     Route: 048
     Dates: start: 20080822, end: 20090227
  15. LIPITOR [Concomitant]
     Route: 048
     Dates: start: 20090228
  16. VITAMINE D [Concomitant]
     Route: 048
     Dates: start: 20080101
  17. CALTRATE [Concomitant]
     Route: 048
     Dates: start: 20080101
  18. ACTONEL [Concomitant]
     Route: 048
     Dates: start: 20080621, end: 20080630
  19. ASPIRIN [Concomitant]
     Indication: PROPHYLAXIS
     Route: 048
  20. METOPROLOL TARTRATE [Concomitant]
     Indication: HYPERTENSION
     Route: 048
  21. PERINDOPRIL/INDAPAMIDE [Concomitant]
     Dosage: 5/1.5 MG DAILY
  22. CHOLECALCIFEROL [Concomitant]

REACTIONS (4)
  - ABDOMINAL PAIN [None]
  - CHEST PAIN [None]
  - CORONARY ARTERY DISEASE [None]
  - DYSPNOEA [None]
